FAERS Safety Report 6163403-3 (Version None)
Quarter: 2009Q2

REPORT INFORMATION
  Report Type: 
  Country: None (occurrence: None)
  Receive Date: 20090422
  Receipt Date: 20090416
  Transmission Date: 20091009
  Serious: Yes (Other)
  Sender: FDA-Public Use
  Company Number: PHEH2009US03857

PATIENT
  Sex: Male

DRUGS (3)
  1. ZOMETA [Suspect]
     Indication: METASTASES TO BONE
     Dosage: 4 MG, QMO
     Route: 042
  2. ZOMETA [Suspect]
     Indication: PROSTATE CANCER
  3. CHEMOTHERAPEUTICS NOS [Concomitant]
     Indication: METASTASES TO BONE

REACTIONS (2)
  - DENTAL CARE [None]
  - JAW FRACTURE [None]
